FAERS Safety Report 22195619 (Version 1)
Quarter: 2023Q2

REPORT INFORMATION
  Report Type: Report from Study
  Country: US (occurrence: None)
  Receive Date: 20230411
  Receipt Date: 20230411
  Transmission Date: 20230722
  Serious: Yes (Hospitalization, Other)
  Sender: FDA-Public Use
  Company Number: US-ROCHE-3327605

PATIENT
  Age: 59 Year
  Sex: Female

DRUGS (3)
  1. OBINUTUZUMAB [Suspect]
     Active Substance: OBINUTUZUMAB
     Indication: Chronic lymphocytic leukaemia
     Dosage: 100 MG ON DAY 1,CYCLE1, 900 MG ON DAY 2, CYCLE 1, 1000 MG ON DAY 8,CYCLE1, 1000 MG ON DAY 15, CYCLE
     Route: 042
     Dates: start: 20200311
  2. VENETOCLAX [Suspect]
     Active Substance: VENETOCLAX
     Indication: Chronic lymphocytic leukaemia
     Route: 048
     Dates: start: 20200311
  3. IBRUTINIB [Suspect]
     Active Substance: IBRUTINIB
     Indication: Chronic lymphocytic leukaemia
     Route: 048
     Dates: start: 20200311

REACTIONS (2)
  - Hypoxia [Unknown]
  - COVID-19 [Unknown]

NARRATIVE: CASE EVENT DATE: 20200413
